FAERS Safety Report 6201812-4 (Version None)
Quarter: 2009Q2

REPORT INFORMATION
  Report Type: 
  Country: None (occurrence: None)
  Receive Date: 20090518
  Receipt Date: 20090330
  Transmission Date: 20091009
  Serious: No
  Sender: FDA-Public Use
  Company Number: WAES 0903USA05550

PATIENT
  Age: 80 Year
  Sex: Female

DRUGS (2)
  1. JANUVIA [Suspect]
     Indication: TYPE 2 DIABETES MELLITUS
     Dosage: PO
     Route: 048
     Dates: start: 20090201
  2. BENAZEPRIL HYDROCHLORIDE [Concomitant]

REACTIONS (2)
  - RHINORRHOEA [None]
  - WRONG TECHNIQUE IN DRUG USAGE PROCESS [None]
